FAERS Safety Report 24921943 (Version 1)
Quarter: 2025Q1

REPORT INFORMATION
  Report Type: Spontaneous
  Country: IT (occurrence: IT)
  Receive Date: 20250204
  Receipt Date: 20250204
  Transmission Date: 20250408
  Serious: Yes (Other)
  Sender: RANBAXY
  Company Number: IT-SUN PHARMACEUTICAL INDUSTRIES LTD-2025RR-492065

PATIENT
  Sex: Female

DRUGS (5)
  1. ODOMZO [Suspect]
     Active Substance: SONIDEGIB
     Indication: Basal cell carcinoma
     Route: 065
     Dates: start: 20240926
  2. Magnesium B2 [Concomitant]
     Indication: Muscle spasms
     Route: 065
  3. RegolaCol [Concomitant]
     Indication: Blood cholesterol
     Route: 065
  4. ACETAMINOPHEN\CAFFEINE\CHLORPHENIRAMINE MALEATE\ETHENZAMIDE\NOSCAPINE\ [Concomitant]
     Active Substance: ACETAMINOPHEN\CAFFEINE\CHLORPHENIRAMINE MALEATE\ETHENZAMIDE\NOSCAPINE\RIBOFLAVIN\SULFOGAIACOL
     Indication: Product used for unknown indication
     Route: 065
  5. Ditralia [Concomitant]
     Indication: Product used for unknown indication
     Route: 065

REACTIONS (2)
  - Therapy cessation [Not Recovered/Not Resolved]
  - Blood creatine phosphokinase increased [Recovering/Resolving]

NARRATIVE: CASE EVENT DATE: 20241218
